FAERS Safety Report 9233136 (Version 2)
Quarter: 2013Q2

REPORT INFORMATION
  Report Type: Report from Study
  Country: AU (occurrence: AU)
  Receive Date: 20130416
  Receipt Date: 20130502
  Transmission Date: 20140414
  Serious: Yes (Hospitalization)
  Sender: FDA-Public Use
  Company Number: PHHY2013AU029968

PATIENT
  Age: 56 Year
  Sex: Female

DRUGS (1)
  1. CLOZARIL [Suspect]
     Indication: SCHIZOPHRENIA
     Dosage: 350 MG, UNK
     Dates: start: 20121116, end: 20130322

REACTIONS (7)
  - Psychotic disorder [Recovering/Resolving]
  - Psychiatric symptom [Unknown]
  - Delusion [Recovering/Resolving]
  - Judgement impaired [Recovering/Resolving]
  - Stubbornness [Recovering/Resolving]
  - Hostility [Recovering/Resolving]
  - Antipsychotic drug level decreased [Unknown]
